FAERS Safety Report 9450858 (Version 1)
Quarter: 2013Q3

REPORT INFORMATION
  Report Type: Spontaneous
  Country: SE (occurrence: SE)
  Receive Date: 20130809
  Receipt Date: 20130809
  Transmission Date: 20140515
  Serious: Yes (Other)
  Sender: FDA-Public Use
  Company Number: SE-PFIZER INC-2013232622

PATIENT
  Age: 72 Year
  Sex: Male

DRUGS (12)
  1. XANOR DEPOT [Suspect]
     Dosage: 2 MG, 1X/DAY
     Dates: start: 20130511, end: 20130517
  2. HEMINEVRIN [Concomitant]
     Dosage: 300 MG, UNK
  3. CITALOPRAM [Concomitant]
     Dosage: 20 MG, UNK
  4. STALEVO [Concomitant]
     Dosage: 150 MG/37.5MG/200MG, UNK
  5. STALEVO [Concomitant]
     Dosage: 200 MG/50MG/200MG
  6. RIVASTIGMINE [Concomitant]
     Dosage: 1.5 MG, UNK
  7. CLOZAPINE [Concomitant]
     Dosage: 25 MG, UNK
  8. FORLAX [Concomitant]
     Dosage: 10 G, UNK
  9. DUROFERON DURETTER [Concomitant]
     Dosage: 100 MG, UNK
  10. ALVEDON [Concomitant]
     Dosage: 500 MG, UNK
  11. MADOPARK QUICK MITE [Concomitant]
     Dosage: 50 MG/12.5 MG, UNK
  12. ZOPICLONE [Concomitant]
     Dosage: 7.5 MG, UNK

REACTIONS (5)
  - Psychomotor hyperactivity [Unknown]
  - Pain [Unknown]
  - Tremor [Unknown]
  - Anxiety [Unknown]
  - Anxiety [Unknown]
